FAERS Safety Report 7498168-6 (Version None)
Quarter: 2011Q2

REPORT INFORMATION
  Report Type: 
  Country: None (occurrence: None)
  Receive Date: 20110524
  Receipt Date: 20110513
  Transmission Date: 20111010
  Serious: No
  Sender: FDA-Public Use
  Company Number: US-BIOGENIDEC-2011BI018502

PATIENT
  Age: 33 Year
  Sex: Female

DRUGS (2)
  1. TYSABRI [Suspect]
     Indication: MULTIPLE SCLEROSIS
     Route: 042
     Dates: start: 20100219
  2. TYSABRI [Suspect]
     Route: 042
     Dates: start: 20070711, end: 20080926

REACTIONS (3)
  - ABASIA [None]
  - OROPHARYNGEAL PAIN [None]
  - COUGH [None]
